FAERS Safety Report 13036379 (Version 6)
Quarter: 2018Q2

REPORT INFORMATION
  Report Type: Report from Study
  Country: CA (occurrence: CA)
  Receive Date: 20161216
  Receipt Date: 20180502
  Transmission Date: 20180711
  Serious: Yes (Other)
  Sender: FDA-Public Use
  Company Number: CA-INCYTE CORPORATION-2016IN003327

PATIENT

DRUGS (2)
  1. JAKAVI [Suspect]
     Active Substance: RUXOLITINIB
     Dosage: 10 MG, BID
     Route: 048
  2. JAKAVI [Suspect]
     Active Substance: RUXOLITINIB
     Indication: POLYCYTHAEMIA VERA
     Dosage: 5 MG, BID
     Route: 048
     Dates: start: 20160512

REACTIONS (20)
  - Increased appetite [Unknown]
  - Hair disorder [Unknown]
  - Peripheral swelling [Unknown]
  - Chest pain [Unknown]
  - Malaise [Unknown]
  - Fatigue [Unknown]
  - Spinal pain [Unknown]
  - Pruritus [Recovering/Resolving]
  - Stomatitis [Unknown]
  - Poor quality sleep [Unknown]
  - Abdominal distension [Unknown]
  - Splenomegaly [Unknown]
  - Myelofibrosis [Unknown]
  - Weight increased [Unknown]
  - Urine analysis abnormal [Unknown]
  - Dyspnoea [Unknown]
  - Dysuria [Unknown]
  - Eating disorder [Recovered/Resolved]
  - Oesophageal disorder [Unknown]
  - Fluid retention [Not Recovered/Not Resolved]
